FAERS Safety Report 7815152-0 (Version None)
Quarter: 2011Q4

REPORT INFORMATION
  Report Type: 
  Country: None (occurrence: None)
  Receive Date: 20111014
  Receipt Date: 20111014
  Transmission Date: 20120403
  Serious: Yes (Other)
  Sender: FDA-Public Use
  Company Number: None

PATIENT
  Sex: Female
  Weight: 90.718 kg

DRUGS (1)
  1. CYMBALTA [Suspect]
     Indication: DEPRESSION
     Dosage: ONE CAPSULE
     Route: 060
     Dates: start: 20090909, end: 20111013

REACTIONS (6)
  - NIGHTMARE [None]
  - TINNITUS [None]
  - VISION BLURRED [None]
  - NAUSEA [None]
  - WITHDRAWAL SYNDROME [None]
  - DIZZINESS [None]
